FAERS Safety Report 24610461 (Version 4)
Quarter: 2025Q1

REPORT INFORMATION
  Report Type: Report from Study
  Country: US (occurrence: US)
  Receive Date: 20241112
  Receipt Date: 20250317
  Transmission Date: 20250409
  Serious: No
  Sender: SUNOVION
  Company Number: US-SMPA-2024SPA004844AA

PATIENT

DRUGS (2)
  1. ORGOVYX [Suspect]
     Active Substance: RELUGOLIX
     Indication: Prostate cancer
     Route: 048
     Dates: start: 20241004, end: 20241004
  2. ORGOVYX [Suspect]
     Active Substance: RELUGOLIX
     Dosage: 120 MG, QD
     Route: 048
     Dates: start: 20241005

REACTIONS (6)
  - Glucose tolerance impaired [Unknown]
  - Feeling cold [Unknown]
  - Pollakiuria [Unknown]
  - Pain [Unknown]
  - Blood cholesterol abnormal [Unknown]
  - Hot flush [Not Recovered/Not Resolved]
